FAERS Safety Report 6980124-5 (Version None)
Quarter: 2010Q3

REPORT INFORMATION
  Report Type: 
  Country: None (occurrence: None)
  Receive Date: 20100914
  Receipt Date: 20100902
  Transmission Date: 20110219
  Serious: Yes (Other)
  Sender: FDA-Public Use
  Company Number: US-TYCO HEALTHCARE/MALLINCKRODT-T201001932

PATIENT
  Sex: Male

DRUGS (9)
  1. OPTIMARK [Suspect]
     Indication: NUCLEAR MAGNETIC RESONANCE IMAGING
     Dosage: 20 ML, SINGLE
     Route: 042
     Dates: start: 20060208, end: 20060208
  2. GADOLINIUM [Suspect]
     Indication: NUCLEAR MAGNETIC RESONANCE IMAGING
     Dosage: UNK
     Dates: start: 20020528, end: 20020528
  3. MULTIHANCE [Suspect]
     Indication: NUCLEAR MAGNETIC RESONANCE IMAGING
     Dosage: 20 ML, SINGLE
     Route: 042
     Dates: start: 20051212, end: 20051212
  4. CYCLOBENZAPRINE [Concomitant]
     Dosage: 10 MG, UNK
  5. LOPRESSOR [Concomitant]
     Dosage: 50 MG, UNK
  6. PEPCID [Concomitant]
     Dosage: 20 MG, UNK
  7. ZOCOR [Concomitant]
     Dosage: 40 MG, UNK
  8. ASPIRIN [Concomitant]
     Dosage: 81 MG, UNK
  9. IMDUR [Concomitant]
     Dosage: 30 MG, UNK

REACTIONS (3)
  - CELLULITIS [None]
  - NEPHROGENIC SYSTEMIC FIBROSIS [None]
  - OFF LABEL USE [None]
